FAERS Safety Report 8922681 (Version 2)
Quarter: 2013Q1

REPORT INFORMATION
  Report Type: Spontaneous
  Country: US (occurrence: None)
  Receive Date: 20121115
  Receipt Date: 20121116
  Transmission Date: 20140127
  Serious: Yes (Other)
  Sender: FDA-Public Use
  Company Number: JPI-P-026049

PATIENT
  Age: 28 Year
  Sex: Female
  Weight: 68.04 kg

DRUGS (1)
  1. XYREM (500 MILLIGRAM/ MILLILITERS, SOLUTION) (SODIUM OXYBATE) [Suspect]
     Indication: FIBROMYALGIA
     Dosage: 4.5 GM (2.25 GM, 2 IN 1 D), ORAL
     Route: 048
     Dates: start: 20081104

REACTIONS (9)
  - Limb crushing injury [None]
  - Post-traumatic neck syndrome [None]
  - Back disorder [None]
  - Initial insomnia [None]
  - Decreased appetite [None]
  - Nausea [None]
  - Dizziness [None]
  - Anxiety [None]
  - Arthropathy [None]
